FAERS Safety Report 7546417-8 (Version None)
Quarter: 2011Q2

REPORT INFORMATION
  Report Type: 
  Country: None (occurrence: None)
  Receive Date: 20110607
  Receipt Date: 20110523
  Transmission Date: 20111010
  Serious: Yes (Hospitalization)
  Sender: FDA-Public Use
  Company Number: 2011MA006233

PATIENT
  Age: 40 Year
  Sex: Female

DRUGS (3)
  1. HALOPERIDOL LACTATE [Suspect]
     Indication: DEPRESSION
     Dosage: 5 MG, QD;
  2. BROMOCRIPTINE MESYLATE [Concomitant]
  3. CLOMIPRAMINE HYDROCHLORIDE [Concomitant]

REACTIONS (9)
  - FATIGUE [None]
  - MAJOR DEPRESSION [None]
  - ATTENTION DEFICIT/HYPERACTIVITY DISORDER [None]
  - HYPERPROLACTINAEMIA [None]
  - APATHY [None]
  - ABNORMAL BEHAVIOUR [None]
  - PITUITARY TUMOUR BENIGN [None]
  - INFERTILITY [None]
  - DISEASE RECURRENCE [None]
